FAERS Safety Report 11547000 (Version 2)
Quarter: 2016Q2

REPORT INFORMATION
  Report Type: Spontaneous
  Country: JP (occurrence: JP)
  Receive Date: 20150924
  Receipt Date: 20160608
  Transmission Date: 20160815
  Serious: Yes (Other)
  Sender: FDA-Public Use
  Company Number: JP-JNJFOC-20150916071

PATIENT
  Age: 6 Decade
  Sex: Female

DRUGS (8)
  1. DIFFERIN [Concomitant]
     Active Substance: ADAPALENE
     Route: 065
  2. STELARA [Suspect]
     Active Substance: USTEKINUMAB
     Indication: PRODUCT USED FOR UNKNOWN INDICATION
     Route: 058
     Dates: end: 20151203
  3. DERMOVATE [Concomitant]
     Active Substance: CLOBETASOL
     Route: 061
  4. PROPETO [Concomitant]
     Route: 065
  5. FLUMETHOLON [Concomitant]
     Active Substance: FLUOROMETHOLONE
     Route: 065
  6. FRADIOMYCIN SULFATE [Concomitant]
     Route: 065
  7. PROTOPIC [Concomitant]
     Active Substance: TACROLIMUS
     Route: 061
  8. ALLELOCK [Concomitant]
     Active Substance: OLOPATADINE HYDROCHLORIDE
     Route: 048

REACTIONS (1)
  - Genital haemorrhage [Recovered/Resolved]

NARRATIVE: CASE EVENT DATE: 20150618
